FAERS Safety Report 9678827 (Version 1)
Quarter: 2013Q4

REPORT INFORMATION
  Report Type: Spontaneous
  Country: FR (occurrence: FR)
  Receive Date: 20131108
  Receipt Date: 20131108
  Transmission Date: 20140711
  Serious: Yes (Hospitalization)
  Sender: FDA-Public Use
  Company Number: FR-GLAXOSMITHKLINE-B0937695A

PATIENT
  Age: 30 Year
  Sex: Male

DRUGS (2)
  1. ARIXTRA [Suspect]
     Indication: PHLEBITIS
     Dosage: 7.5MG PER DAY
     Route: 058
     Dates: start: 20131002, end: 20131005
  2. LOVENOX [Suspect]
     Indication: PHLEBITIS
     Dosage: 8000IU UNKNOWN
     Route: 058
     Dates: start: 20131006

REACTIONS (2)
  - Incision site haemorrhage [Not Recovered/Not Resolved]
  - Surgical procedure repeated [Not Recovered/Not Resolved]
